FAERS Safety Report 8946759 (Version 11)
Quarter: 2014Q1

REPORT INFORMATION
  Report Type: Spontaneous
  Country: US (occurrence: US)
  Receive Date: 20121205
  Receipt Date: 20140219
  Transmission Date: 20141002
  Serious: Yes (Hospitalization, Other)
  Sender: FDA-Public Use
  Company Number: US-009507513-1212USA001662

PATIENT
  Sex: Female
  Weight: 56.69 kg

DRUGS (6)
  1. FOSAMAX [Suspect]
     Indication: OSTEOPOROSIS
     Dosage: 70 MG, QW
     Route: 048
     Dates: start: 200212, end: 200810
  2. FOSAMAX PLUS D [Suspect]
     Dosage: 70 MG/2800 IU QD
     Route: 048
  3. ALENDRONATE SODIUM [Suspect]
     Indication: OSTEOPOROSIS
     Dosage: 70 MG,QW
     Route: 048
     Dates: start: 200811, end: 201004
  4. CALCIUM (UNSPECIFIED) (+) VITAMIN D (UNSPECIFIED) [Concomitant]
     Dosage: 600 MG, BID
     Dates: start: 1993
  5. VITAMINS (UNSPECIFIED) [Concomitant]
     Dosage: 1 DAILY
     Dates: start: 1993
  6. PREVACID [Concomitant]
     Indication: GASTROOESOPHAGEAL REFLUX DISEASE
     Dosage: UNK
     Dates: start: 1998

REACTIONS (26)
  - Femur fracture [Recovered/Resolved]
  - Intramedullary rod insertion [Recovered/Resolved]
  - Bladder cancer [Unknown]
  - Fall [Unknown]
  - Hypertension [Not Recovered/Not Resolved]
  - Foot fracture [Unknown]
  - Hypertension [Recovered/Resolved]
  - Supraventricular extrasystoles [Unknown]
  - Ventricular extrasystoles [Unknown]
  - Gait disturbance [Unknown]
  - Pyelonephritis [Unknown]
  - Biopsy bladder [Unknown]
  - Female sterilisation [Unknown]
  - Hydronephrosis [Unknown]
  - Spondylolysis [Unknown]
  - Lung disorder [Unknown]
  - Osteopenia [Unknown]
  - Osteopenia [Unknown]
  - Postoperative heterotopic calcification [Unknown]
  - Calcinosis [Unknown]
  - Venous pressure jugular increased [Unknown]
  - Anaemia postoperative [Unknown]
  - Inappropriate schedule of drug administration [Unknown]
  - Arthralgia [Unknown]
  - Abdominal pain [Unknown]
  - Dysphagia [Unknown]
